FAERS Safety Report 7713361-2 (Version None)
Quarter: 2011Q3

REPORT INFORMATION
  Report Type: 
  Country: None (occurrence: None)
  Receive Date: 20110826
  Receipt Date: 20110114
  Transmission Date: 20111222
  Serious: No
  Sender: FDA-Public Use
  Company Number: US-BAYER-2011-005089

PATIENT
  Age: 52 Year
  Sex: Female

DRUGS (1)
  1. MAGNEVIST [Suspect]
     Indication: NUCLEAR MAGNETIC RESONANCE IMAGING
     Dosage: 13 ML, UNK
     Route: 042
     Dates: start: 20110113, end: 20110113

REACTIONS (2)
  - URTICARIA [None]
  - PRURITUS [None]
